FAERS Safety Report 15544571 (Version 4)
Quarter: 2018Q4

REPORT INFORMATION
  Report Type: Report from Study
  Country: DE (occurrence: DE)
  Receive Date: 20181024
  Receipt Date: 20181106
  Transmission Date: 20190205
  Serious: Yes (Hospitalization)
  Sender: FDA-Public Use
  Company Number: DE-ROCHE-2202904

PATIENT
  Age: 46 Year
  Sex: Male
  Weight: 85 kg

DRUGS (2)
  1. COBIMETINIB. [Suspect]
     Active Substance: COBIMETINIB
     Indication: METASTATIC MALIGNANT MELANOMA
     Dosage: DATE OF MOST RECENT DOSE (60MG) OF COBIMETINIB PRIOR TO SAE ONSET: 19/OCT/2018
     Route: 048
     Dates: start: 20180919
  2. VEMURAFENIB. [Suspect]
     Active Substance: VEMURAFENIB
     Indication: METASTATIC MALIGNANT MELANOMA
     Dosage: DATE OF MOST RECENT DOSE (960MG) OF VEMURAFENIB PRIOR TO SAE ONSET 19/10/2018
     Route: 048
     Dates: start: 20180919

REACTIONS (1)
  - General physical health deterioration [Recovered/Resolved]

NARRATIVE: CASE EVENT DATE: 20181018
